FAERS Safety Report 9840895 (Version 1)
Quarter: 2013Q4

REPORT INFORMATION
  Report Type: Spontaneous
  Country: US (occurrence: None)
  Receive Date: 20131212
  Receipt Date: 20131212
  Transmission Date: 20140711
  Serious: Yes (Hospitalization)
  Sender: FDA-Public Use
  Company Number: 20130214CINRY3941

PATIENT
  Age: 52 Year
  Sex: Female

DRUGS (5)
  1. CINRYZE [Suspect]
     Indication: HEREDITARY ANGIOEDEMA
     Route: 042
     Dates: start: 2012
  2. CINRYZE [Suspect]
     Indication: PROPHYLAXIS
     Route: 042
     Dates: start: 2012
  3. DANOCRINE (DANAZOL (CAPSULES) [Concomitant]
  4. KALBITOR (ECALLANTIDE) (INJECTION) [Concomitant]
  5. FIRAZYR  (ICATIBANT ACETATE) [Concomitant]

REACTIONS (2)
  - Laryngeal oedema [None]
  - Hereditary angioedema [None]
